FAERS Safety Report 5936696-2 (Version None)
Quarter: 2008Q4

REPORT INFORMATION
  Report Type: 
  Country: None (occurrence: None)
  Receive Date: 20081030
  Receipt Date: 20081028
  Transmission Date: 20090506
  Serious: Yes (Other)
  Sender: FDA-Public Use
  Company Number: ES-MERCK-0805ESP00033

PATIENT
  Age: 70 Year
  Sex: Male

DRUGS (6)
  1. INVANZ [Suspect]
     Indication: BACTERIAL INFECTION
     Route: 042
     Dates: start: 20080403, end: 20080501
  2. INVANZ [Suspect]
     Route: 042
     Dates: start: 20080208, end: 20080225
  3. GABAPENTIN [Concomitant]
     Route: 065
     Dates: end: 20080225
  4. REBOXETINE [Concomitant]
     Indication: DEPRESSION
     Route: 065
     Dates: end: 20080225
  5. LINEZOLID [Concomitant]
     Indication: BACTERIAL INFECTION
     Route: 065
     Dates: end: 20080225
  6. [THERAPY UNSPECIFIED] [Concomitant]
     Indication: DEPRESSION
     Route: 065

REACTIONS (8)
  - CONFUSIONAL STATE [None]
  - DISORIENTATION [None]
  - DYSKINESIA [None]
  - HALLUCINATION, VISUAL [None]
  - HEADACHE [None]
  - MYOCLONUS [None]
  - SOMNOLENCE [None]
  - TREMOR [None]
